FAERS Safety Report 12948766 (Version 1)
Quarter: 2016Q4

REPORT INFORMATION
  Report Type: Report from Study
  Country: US (occurrence: US)
  Receive Date: 20161116
  Receipt Date: 20161116
  Transmission Date: 20170207
  Serious: Yes (Hospitalization, Other)
  Sender: FDA-Public Use
  Company Number: US-JNJFOC-20161026920

PATIENT
  Age: 74 Year
  Sex: Male

DRUGS (21)
  1. CELEBREX [Concomitant]
     Active Substance: CELECOXIB
  2. PRILOSEC [Concomitant]
     Active Substance: OMEPRAZOLE MAGNESIUM
  3. ZOCOR [Concomitant]
     Active Substance: SIMVASTATIN
  4. IRON [Concomitant]
     Active Substance: IRON
  5. IMBRUVICA [Suspect]
     Active Substance: IBRUTINIB
     Indication: WALDENSTROM^S MACROGLOBULINAEMIA
     Route: 048
     Dates: start: 20160917, end: 20161028
  6. FINASTERIDE. [Concomitant]
     Active Substance: FINASTERIDE
  7. ALLOPURINOL. [Concomitant]
     Active Substance: ALLOPURINOL
  8. GABAPENTIN. [Concomitant]
     Active Substance: GABAPENTIN
  9. ACYCLOVIR. [Concomitant]
     Active Substance: ACYCLOVIR
  10. ZOFRAN [Concomitant]
     Active Substance: ONDANSETRON HYDROCHLORIDE
  11. VITAMIN D [Concomitant]
     Active Substance: CHOLECALCIFEROL
  12. PROCHLORPERAZINE. [Concomitant]
     Active Substance: PROCHLORPERAZINE
  13. IMBRUVICA [Suspect]
     Active Substance: IBRUTINIB
     Indication: B-CELL SMALL LYMPHOCYTIC LYMPHOMA
     Route: 048
     Dates: start: 20160917, end: 20161028
  14. COREG [Concomitant]
     Active Substance: CARVEDILOL
  15. ASPIRIN. [Concomitant]
     Active Substance: ASPIRIN
  16. IPRATROPIUM [Concomitant]
     Active Substance: IPRATROPIUM
  17. OXYCODONE [Concomitant]
     Active Substance: OXYCODONE
  18. ALFUZOSIN [Concomitant]
     Active Substance: ALFUZOSIN
  19. LISINOPRIL. [Concomitant]
     Active Substance: LISINOPRIL
  20. VITAMIN D3 [Concomitant]
     Active Substance: CHOLECALCIFEROL
  21. FERROUS SULFATE. [Concomitant]
     Active Substance: FERROUS SULFATE

REACTIONS (15)
  - Pericardial effusion [Unknown]
  - Atrial fibrillation [Unknown]
  - Tremor [Unknown]
  - Nausea [Unknown]
  - Dysphagia [Unknown]
  - Hypotension [Unknown]
  - Vomiting [Unknown]
  - Lung infection [Recovered/Resolved]
  - Incorrect dose administered [Recovered/Resolved]
  - Dyspnoea [Unknown]
  - Pericarditis [Unknown]
  - Diarrhoea [Recovering/Resolving]
  - Renal failure [Unknown]
  - Dysphonia [Not Recovered/Not Resolved]
  - Off label use [Recovered/Resolved]

NARRATIVE: CASE EVENT DATE: 20160917
